FAERS Safety Report 21260651 (Version 1)
Quarter: 2022Q3

REPORT INFORMATION
  Report Type: Spontaneous
  Country: JP (occurrence: JP)
  Receive Date: 20220826
  Receipt Date: 20220826
  Transmission Date: 20221026
  Serious: Yes (Death)
  Sender: FDA-Public Use
  Company Number: JP-UCBJ-CD202208486UCBPHAPROD

PATIENT
  Age: 30 Year
  Sex: Female

DRUGS (4)
  1. VIMPAT [Suspect]
     Active Substance: LACOSAMIDE
     Indication: Epilepsy
     Dosage: 100MG DAILY
     Route: 041
     Dates: start: 20210508, end: 20210514
  2. VIMPAT [Suspect]
     Active Substance: LACOSAMIDE
     Dosage: 200MG DAILY
     Route: 041
     Dates: start: 20210515, end: 20210616
  3. VIMPAT [Suspect]
     Active Substance: LACOSAMIDE
     Indication: Epilepsy
     Dosage: 200MG PER DAY
     Route: 048
     Dates: start: 20210617
  4. FOSPHENYTOIN SODIUM [Concomitant]
     Active Substance: FOSPHENYTOIN SODIUM
     Indication: Product used for unknown indication
     Dosage: 1000 MILLIGRAM, ONCE DAILY (QD)
     Dates: start: 20210508, end: 20210514

REACTIONS (2)
  - Death [Fatal]
  - Neoplasm [Unknown]

NARRATIVE: CASE EVENT DATE: 20220101
